FAERS Safety Report 8507675-6 (Version None)
Quarter: 2012Q3

REPORT INFORMATION
  Report Type: 
  Country: None (occurrence: None)
  Receive Date: 20120713
  Receipt Date: 20120411
  Transmission Date: 20120928
  Serious: Yes (Other)
  Sender: FDA-Public Use
  Company Number: US-JNJCP-30000100425

PATIENT
  Age: 52 Year
  Sex: Female
  Weight: 47 kg

DRUGS (2)
  1. REMBRANDT WHITENING MOUTHWASH USA RBWHMWUS [Suspect]
     Dosage: AN OUNCE AND A HALF, TWO TIMES A DAY
     Route: 049
  2. 18 PILLS A DAY [Concomitant]

REACTIONS (2)
  - TOOTH DISORDER [None]
  - DEVICE BREAKAGE [None]
